FAERS Safety Report 9387135 (Version 5)
Quarter: 2013Q3

REPORT INFORMATION
  Report Type: Report from Study
  Country: AR (occurrence: AR)
  Receive Date: 20130708
  Receipt Date: 20130913
  Transmission Date: 20140515
  Serious: Yes (Hospitalization)
  Sender: FDA-Public Use
  Company Number: AR-UCBSA-088834

PATIENT
  Age: 43 Year
  Sex: Female
  Weight: 129.5 kg

DRUGS (16)
  1. CERTOLIZUMAB PEGOL [Suspect]
     Indication: RHEUMATOID ARTHRITIS
     Route: 058
     Dates: end: 20130625
  2. PREDNISONE [Concomitant]
     Indication: RHEUMATOID ARTHRITIS
     Route: 048
     Dates: start: 20130307, end: 2013
  3. PREDNISONE [Concomitant]
     Indication: RHEUMATOID ARTHRITIS
     Route: 048
     Dates: start: 20130614
  4. DICLOFENAC [Concomitant]
     Indication: RHEUMATOID ARTHRITIS
     Route: 048
     Dates: start: 20121211
  5. OMEPRAZOLE [Concomitant]
     Indication: PROPHYLAXIS AGAINST GASTROINTESTINAL ULCER
     Route: 048
     Dates: start: 20130307
  6. METHOTREXATE [Concomitant]
     Indication: RHEUMATOID ARTHRITIS
     Route: 048
     Dates: start: 20130625
  7. METHOTREXATE [Concomitant]
     Indication: RHEUMATOID ARTHRITIS
     Dosage: 15 MG/WEEK
     Route: 048
  8. FOLIC ACID [Concomitant]
     Indication: PROPHYLAXIS
     Route: 048
     Dates: start: 20130604
  9. SODIUM HEPARIN [Concomitant]
     Indication: DEEP VEIN THROMBOSIS
     Dosage: 5000 IU, AT INITIAL DOSE OF 14 IU/KG/H
     Route: 042
     Dates: start: 20130612, end: 20130612
  10. SODIUM HEPARIN [Concomitant]
     Indication: DEEP VEIN THROMBOSIS
     Dosage: 18 IU/KG/H
     Route: 042
     Dates: start: 20130613, end: 20130614
  11. HYDROCORTISONE [Concomitant]
     Indication: ADRENAL INSUFFICIENCY
     Route: 042
     Dates: start: 20130612
  12. ENOXAPARIN [Concomitant]
     Indication: DEEP VEIN THROMBOSIS
     Route: 058
     Dates: start: 20130614
  13. ACENOCOUMAROL [Concomitant]
     Indication: DEEP VEIN THROMBOSIS
     Dosage: DAILY DOSE: 2 MG
     Route: 048
     Dates: start: 20130614, end: 201306
  14. ACENOCOUMAROL [Concomitant]
     Indication: DEEP VEIN THROMBOSIS
     Dosage: DAILY DOSE: 3 MG
     Route: 048
     Dates: start: 20130617, end: 2013
  15. ACENOCOUMAROL [Concomitant]
     Indication: DEEP VEIN THROMBOSIS
     Dosage: 4 MG/DAY
     Route: 048
     Dates: start: 20130701
  16. LEVOTHYROXINE [Concomitant]
     Indication: HYPOTHYROIDISM
     Route: 048
     Dates: start: 201302

REACTIONS (2)
  - Deep vein thrombosis [Recovered/Resolved with Sequelae]
  - Cellulitis [Recovered/Resolved]
